FAERS Safety Report 10548557 (Version 4)
Quarter: 2015Q1

REPORT INFORMATION
  Report Type: Spontaneous
  Country: JP (occurrence: JP)
  Receive Date: 20141028
  Receipt Date: 20150130
  Transmission Date: 20150720
  Serious: Yes (Life-Threatening, Hospitalization, Disabling, Other)
  Sender: FDA-Public Use
  Company Number: JP-PFIZER INC-2014295677

PATIENT
  Age: 56 Year
  Sex: Female
  Weight: 49 kg

DRUGS (17)
  1. ROHYPNOL [Concomitant]
     Active Substance: FLUNITRAZEPAM
     Indication: INSOMNIA
     Dosage: 2 MG, 1X/DAY
     Route: 048
     Dates: end: 20131023
  2. LUNESTA [Concomitant]
     Active Substance: ESZOPICLONE
     Indication: INSOMNIA
     Dosage: 2 MG, 1X/DAY
     Route: 048
     Dates: end: 20131023
  3. BOFU-TSUSHO-SAN [Concomitant]
     Indication: CONSTIPATION
     Dosage: 2.5 MG, 3X/DAY
     Route: 048
     Dates: end: 20131023
  4. DEPAKENE [Concomitant]
     Active Substance: VALPROIC ACID
     Indication: DYSTHYMIC DISORDER
     Dosage: 200 MG, 1X/DAY
     Route: 048
     Dates: end: 20131023
  5. CHAMPIX [Suspect]
     Active Substance: VARENICLINE TARTRATE
     Indication: SMOKING CESSATION THERAPY
  6. TERBINAFINE [Concomitant]
     Active Substance: TERBINAFINE
     Indication: ONYCHOMYCOSIS
     Dosage: 125 MG, 1X/DAY
     Route: 048
     Dates: end: 20131023
  7. SEROQUEL [Concomitant]
     Active Substance: QUETIAPINE FUMARATE
     Dosage: 100 MG, 1X/DAY
     Route: 048
     Dates: end: 20131023
  8. DEPAS [Concomitant]
     Active Substance: ETIZOLAM
     Indication: INSOMNIA
     Dosage: 1 MG, 1X/DAY
     Route: 048
     Dates: end: 20131023
  9. AKINETON [Concomitant]
     Active Substance: BIPERIDEN HYDROCHLORIDE
     Indication: PARKINSONISM
     Dosage: 1 MG, 2X/DAY
     Route: 048
     Dates: end: 20131023
  10. HALCION [Concomitant]
     Active Substance: TRIAZOLAM
     Indication: INSOMNIA
     Dosage: 0.25 MG, 1X/DAY
     Route: 048
     Dates: end: 20131023
  11. ALPRAZOLAM. [Concomitant]
     Active Substance: ALPRAZOLAM
     Indication: DYSTHYMIC DISORDER
     Dosage: 0.8 MG, 1X/DAY
     Route: 048
     Dates: end: 20131023
  12. LUVOX [Concomitant]
     Active Substance: FLUVOXAMINE MALEATE
     Indication: DEPRESSION
     Dosage: 500 MG, 1X/DAY
     Route: 048
     Dates: end: 20131023
  13. CHAMPIX [Suspect]
     Active Substance: VARENICLINE TARTRATE
     Indication: NICOTINE DEPENDENCE
     Dosage: 1.0 MG, 2X/DAY
     Route: 048
     Dates: start: 20130917, end: 20131023
  14. HIRNAMIN [Concomitant]
     Active Substance: PHENOTHIAZINE
     Indication: DEPRESSION
     Dosage: 25 MG, 1X/DAY
     Route: 048
     Dates: end: 20131023
  15. SEROQUEL [Concomitant]
     Active Substance: QUETIAPINE FUMARATE
     Indication: DEPRESSION
     Dosage: 25 MG, 1X/DAY
     Route: 048
     Dates: end: 20131023
  16. ABILIFY [Concomitant]
     Active Substance: ARIPIPRAZOLE
     Indication: DEPRESSION
     Dosage: 3 MG, 1X/DAY
     Route: 048
     Dates: end: 20131023
  17. VEGETAMIN A [Concomitant]
     Active Substance: CHLORPROMAZINE HYDROCHLORIDE\PHENOBARBITAL\PROMETHAZINE
     Indication: NEUROSIS
     Dosage: 1 DF, 1X/DAY
     Route: 048
     Dates: end: 20131023

REACTIONS (11)
  - Toxicity to various agents [Recovered/Resolved]
  - Disease progression [Recovering/Resolving]
  - Suicidal ideation [Recovering/Resolving]
  - Acute respiratory failure [Recovered/Resolved]
  - Altered state of consciousness [Recovered/Resolved]
  - Decreased appetite [Recovered/Resolved]
  - Neuropathy peripheral [Not Recovered/Not Resolved]
  - Depression [Recovering/Resolving]
  - Fall [Recovered/Resolved]
  - Muscular weakness [Recovered/Resolved]
  - Hypoaesthesia [Recovering/Resolving]

NARRATIVE: CASE EVENT DATE: 20130917
